FAERS Safety Report 6816162-2 (Version None)
Quarter: 2010Q3

REPORT INFORMATION
  Report Type: 
  Country: None (occurrence: None)
  Receive Date: 20100702
  Receipt Date: 20100702
  Transmission Date: 20110219
  Serious: No
  Sender: FDA-Public Use
  Company Number: None

PATIENT
  Sex: Male

DRUGS (1)
  1. DILANTIN KAPSEAL [Suspect]
     Indication: EPILEPSY
     Dosage: 2 PO QAM 2 PO QPM AND EVERY OTHER NIGHT 3 TABS QPM
     Dates: start: 20080101

REACTIONS (1)
  - NO ADVERSE EVENT [None]
